FAERS Safety Report 7964014-7 (Version None)
Quarter: 2011Q4

REPORT INFORMATION
  Report Type: 
  Country: None (occurrence: None)
  Receive Date: 20111208
  Receipt Date: 20111115
  Transmission Date: 20120403
  Serious: No
  Sender: FDA-Public Use
  Company Number: US-BAYER-2011-111686

PATIENT
  Sex: Female

DRUGS (4)
  1. SYNTHROID [Concomitant]
  2. ALEVE (CAPLET) [Suspect]
     Indication: PRODUCT USED FOR UNKNOWN INDICATION
  3. SUN BATH PROTECTIVE TANNING LOTION [Interacting]
     Indication: PRODUCT USED FOR UNKNOWN INDICATION
  4. SUN BATH PROTECTIVE TANNING LOTION [Interacting]

REACTIONS (3)
  - THERMAL BURN [None]
  - RASH PAPULAR [None]
  - PRURITUS [None]
